FAERS Safety Report 6704477-8 (Version None)
Quarter: 2010Q2

REPORT INFORMATION
  Report Type: 
  Country: None (occurrence: None)
  Receive Date: 20100430
  Receipt Date: 20100422
  Transmission Date: 20101027
  Serious: Yes (Hospitalization)
  Sender: FDA-Public Use
  Company Number: GXKR2010CH04619

PATIENT
  Age: 44 Year
  Sex: Male

DRUGS (9)
  1. CLOZAPINE [Suspect]
     Dosage: 200 MG, DAILY
     Route: 048
     Dates: start: 20100211
  2. RISPERDAL [Interacting]
     Dosage: 50 MG, TWO-WEEKLY
     Route: 048
  3. SOLIAN [Interacting]
     Dosage: 1000 MG, DAILY
     Route: 048
  4. SOLIAN [Interacting]
     Dosage: 800 MG/DAY
     Dates: start: 20100217
  5. PROMAZINE HYDROCHLORIDE [Interacting]
     Dosage: 200 MG, DAILY
     Route: 048
     Dates: start: 20100218, end: 20100218
  6. HALDOL [Concomitant]
     Dosage: 4 MG, QD
     Route: 048
     Dates: end: 20100212
  7. RIVOTRIL [Concomitant]
     Route: 048
  8. FLURAZEPAM HYDROCHLORIDE [Concomitant]
     Route: 048
  9. BIPERIDEN HYDROCHLORIDE [Concomitant]
     Route: 048

REACTIONS (6)
  - AGITATION [None]
  - DRUG INTERACTION [None]
  - ENDOTRACHEAL INTUBATION [None]
  - NEUROLEPTIC MALIGNANT SYNDROME [None]
  - PYREXIA [None]
  - RHABDOMYOLYSIS [None]
